FAERS Safety Report 13782201 (Version 1)
Quarter: 2017Q3

REPORT INFORMATION
  Report Type: Spontaneous
  Country: US (occurrence: US)
  Receive Date: 20170724
  Receipt Date: 20170724
  Transmission Date: 20171127
  Serious: No
  Sender: FDA-Public Use
  Company Number: None

PATIENT
  Age: 56 Year
  Sex: Female
  Weight: 57.6 kg

DRUGS (2)
  1. SYNTHROID [Concomitant]
     Active Substance: LEVOTHYROXINE SODIUM
  2. BOTOX [Suspect]
     Active Substance: ONABOTULINUMTOXINA
     Indication: SKIN COSMETIC PROCEDURE
     Dates: start: 20170714, end: 20170714

REACTIONS (7)
  - Fatigue [None]
  - Chills [None]
  - Tachycardia [None]
  - Hyperhidrosis [None]
  - Emotional disorder [None]
  - Influenza like illness [None]
  - Myalgia [None]

NARRATIVE: CASE EVENT DATE: 20170714
